FAERS Safety Report 5162588-5 (Version None)
Quarter: 2006Q4

REPORT INFORMATION
  Report Type: 
  Country: None (occurrence: None)
  Receive Date: 20061201
  Receipt Date: 20061120
  Transmission Date: 20070319
  Serious: Yes (Other)
  Sender: FDA-Public Use
  Company Number: PHEH2006US14458

PATIENT
  Age: 50 Year
  Sex: Female

DRUGS (2)
  1. GENTEAL GEL (NVO) [Suspect]
     Indication: DRY EYE
     Dosage: 1 GTT, PRN
     Dates: end: 20061001
  2. GENTEAL LUBRICATING EYE GEL (NVO) [Suspect]
     Indication: DRY EYE
     Dosage: 1-2 GTT, PRN
     Dates: end: 20061001

REACTIONS (4)
  - DACRYOSTENOSIS ACQUIRED [None]
  - LACRIMAL DUCT PROCEDURE [None]
  - PHARMACEUTICAL PRODUCT COMPLAINT [None]
  - REACTION TO DRUG EXCIPIENTS [None]
